FAERS Safety Report 6555262-1 (Version None)
Quarter: 2010Q1

REPORT INFORMATION
  Report Type: 
  Country: None (occurrence: None)
  Receive Date: 20100128
  Receipt Date: 20090209
  Transmission Date: 20100710
  Serious: Yes (Other)
  Sender: FDA-Public Use
  Company Number: A0767716A

PATIENT
  Age: 47 Year
  Sex: Male

DRUGS (6)
  1. BUPROPION HYDROCHLORIDE [Suspect]
     Indication: DEPRESSION
     Dosage: 75MG PER DAY
     Route: 048
     Dates: end: 20090207
  2. WELLBUTRIN XL [Suspect]
     Indication: DRUG USE FOR UNKNOWN INDICATION
     Dosage: 150MG PER DAY
     Route: 048
  3. LYRICA [Concomitant]
  4. DEPAKOTE [Concomitant]
  5. CLONAZEPAM [Concomitant]
  6. TRAZODONE [Concomitant]

REACTIONS (1)
  - HYPOMANIA [None]
